FAERS Safety Report 5874385-3 (Version None)
Quarter: 2008Q3

REPORT INFORMATION
  Report Type: 
  Country: None (occurrence: None)
  Receive Date: 20080908
  Receipt Date: 20080829
  Transmission Date: 20090109
  Serious: Yes (Other)
  Sender: FDA-Public Use
  Company Number: US-PFIZER INC-2008072957

PATIENT
  Sex: Female
  Weight: 79.545 kg

DRUGS (3)
  1. LIPITOR [Suspect]
     Indication: BLOOD CHOLESTEROL INCREASED
  2. LYRICA [Suspect]
     Indication: HERPES ZOSTER
     Dosage: TEXT:300MG
     Dates: start: 20080314, end: 20080827
  3. ALL OTHER THERAPEUTIC PRODUCTS [Concomitant]

REACTIONS (6)
  - DIZZINESS [None]
  - HERPES ZOSTER [None]
  - HYPERTENSION [None]
  - OEDEMA PERIPHERAL [None]
  - POLLAKIURIA [None]
  - VISION BLURRED [None]
